FAERS Safety Report 26075330 (Version 2)
Quarter: 2025Q4

REPORT INFORMATION
  Report Type: Report from Study
  Country: US (occurrence: US)
  Receive Date: 20251121
  Receipt Date: 20251208
  Transmission Date: 20260118
  Serious: Yes (Hospitalization)
  Sender: GILEAD
  Company Number: US-GILEAD-2025-0737460

PATIENT
  Age: 64 Year
  Sex: Female

DRUGS (5)
  1. AZTREONAM LYSINE [Suspect]
     Active Substance: AZTREONAM LYSINE
     Indication: Bacterial infection
     Dosage: 75MG 3 TIMES A DAY
     Route: 065
     Dates: start: 201912
  2. AZTREONAM LYSINE [Suspect]
     Active Substance: AZTREONAM LYSINE
     Indication: Cystic fibrosis lung
     Dosage: INHALE 75MG 3 TIMES A DAY
     Route: 055
     Dates: start: 201912
  3. AZTREONAM LYSINE [Suspect]
     Active Substance: AZTREONAM LYSINE
     Indication: Cystic fibrosis gastrointestinal disease
  4. TRIKAFTA [Concomitant]
     Active Substance: ELEXACAFTOR\IVACAFTOR\TEZACAFTOR
     Indication: Cystic fibrosis lung
     Dosage: TAKE 2 ORANGE TABLETS BY MOUTH IN THE AM AND 1 LIGHT BLUE TABLET IN THE PM
     Route: 048
     Dates: start: 201912
  5. ALYFTREK [Concomitant]
     Active Substance: DEUTIVACAFTOR\TEZACAFTOR\VANZACAFTOR
     Indication: Cystic fibrosis lung
     Dosage: TAKE 2 TABLETS BY MOUTH 1 TIME A DAY WITH FAT CONTAINING FOOD FOR CYSTIC FIBROSIS WITH RESPONSIVE CF
     Route: 048

REACTIONS (6)
  - Respiratory syncytial virus infection [Recovered/Resolved]
  - Influenza like illness [Unknown]
  - Pain [Unknown]
  - Chills [Unknown]
  - Headache [Unknown]
  - Pyrexia [Unknown]

NARRATIVE: CASE EVENT DATE: 20251028
